FAERS Safety Report 23245377 (Version 1)
Quarter: 2023Q4

REPORT INFORMATION
  Report Type: Spontaneous
  Country: US (occurrence: US)
  Receive Date: 20231130
  Receipt Date: 20231130
  Transmission Date: 20240110
  Serious: No
  Sender: FDA-Public Use
  Company Number: US-ALVOGEN-2023092214

PATIENT
  Sex: Female

DRUGS (3)
  1. TERIPARATIDE [Suspect]
     Active Substance: TERIPARATIDE
     Indication: Product used for unknown indication
     Dosage: SHE WAS USING IT FROM 9 MONTHS.
  2. TERIPARATIDE [Suspect]
     Active Substance: TERIPARATIDE
     Indication: Product used for unknown indication
     Dosage: 1ST LOT DETAILS?EXPIRATION DATE: 30-SEP-2024
     Dates: start: 2023
  3. TERIPARATIDE [Suspect]
     Active Substance: TERIPARATIDE
     Indication: Product used for unknown indication
     Dosage: 2ND LOT DETAILS?EXPIRATION DATE: 31-AUG-2024
     Dates: start: 2023

REACTIONS (4)
  - Device malfunction [Unknown]
  - Device defective [Unknown]
  - Device issue [Unknown]
  - Incorrect dose administered by device [Unknown]
